FAERS Safety Report 6067227-7 (Version None)
Quarter: 2009Q1

REPORT INFORMATION
  Report Type: 
  Country: None (occurrence: None)
  Receive Date: 20090205
  Receipt Date: 20090130
  Transmission Date: 20090719
  Serious: Yes (Other)
  Sender: FDA-Public Use
  Company Number: PHBS2009SE00658

PATIENT
  Age: 42 Year
  Sex: Female

DRUGS (3)
  1. BACLOFEN [Suspect]
     Indication: HUNTINGTON'S CHOREA
     Dosage: 30 MG
  2. LITHIUM CARBONATE [Interacting]
     Indication: HUNTINGTON'S CHOREA
     Dosage: UNK
  3. HALOPERIDOL [Concomitant]
     Dosage: 4 MG

REACTIONS (3)
  - ATTENTION DEFICIT/HYPERACTIVITY DISORDER [None]
  - CONDITION AGGRAVATED [None]
  - DRUG INTERACTION [None]
